FAERS Safety Report 19381993 (Version 1)
Quarter: 2021Q2

REPORT INFORMATION
  Report Type: Spontaneous
  Country: US (occurrence: US)
  Receive Date: 20210607
  Receipt Date: 20210607
  Transmission Date: 20210717
  Serious: Yes (Other)
  Sender: FDA-Public Use
  Company Number: US-SA-2021SA179011

PATIENT
  Age: 79 Year
  Sex: Male

DRUGS (1)
  1. TRIAMCINOLONE ACETONIDE. [Suspect]
     Active Substance: TRIAMCINOLONE ACETONIDE
     Indication: CYSTOID MACULAR OEDEMA
     Dosage: INJECTION
     Route: 031

REACTIONS (7)
  - Visual impairment [Recovered/Resolved]
  - Non-infectious endophthalmitis [Recovered/Resolved]
  - Disease recurrence [Recovered/Resolved]
  - Vitritis [Recovered/Resolved]
  - Pseudoendophthalmitis [Recovered/Resolved]
  - Hypopyon [Recovered/Resolved]
  - Anterior chamber inflammation [Recovered/Resolved]
